FAERS Safety Report 24007206 (Version 2)
Quarter: 2024Q4

REPORT INFORMATION
  Report Type: Spontaneous
  Country: US (occurrence: US)
  Receive Date: 20240624
  Receipt Date: 20241126
  Transmission Date: 20250115
  Serious: No
  Sender: BIOGEN
  Company Number: US-BIOGEN-2024BI01270090

PATIENT
  Sex: Male
  Weight: 82 kg

DRUGS (12)
  1. QALSODY [Suspect]
     Active Substance: TOFERSEN
     Indication: Amyotrophic lateral sclerosis
     Route: 050
     Dates: start: 20240614
  2. RADICAVA [Concomitant]
     Active Substance: EDARAVONE
     Indication: Amyotrophic lateral sclerosis
     Dosage: 105MG/5ML
     Route: 050
     Dates: start: 202405
  3. RILUZOLE [Concomitant]
     Active Substance: RILUZOLE
     Indication: Amyotrophic lateral sclerosis
     Route: 050
     Dates: start: 202404
  4. VITAMIN B12 [Concomitant]
     Active Substance: CYANOCOBALAMIN
     Indication: Product used for unknown indication
     Route: 050
  5. CLONAZEPAM [Concomitant]
     Active Substance: CLONAZEPAM
     Indication: Anxiety
     Route: 050
  6. WELLBUTRIN [Concomitant]
     Active Substance: BUPROPION HYDROCHLORIDE
     Indication: Product used for unknown indication
     Route: 050
  7. ACETAZOLAMIDE [Concomitant]
     Active Substance: ACETAZOLAMIDE
     Indication: Product used for unknown indication
     Dosage: 2 TABLETS IN THE MORNING, 1 TABLET IN THE AFTERNOON, 2 TABLETS IN THE EVENING
     Route: 050
  8. TRELEGY ELLIPTA [Concomitant]
     Active Substance: FLUTICASONE FUROATE\UMECLIDINIUM BROMIDE\VILANTEROL TRIFENATATE
     Indication: Chronic obstructive pulmonary disease
     Dosage: 100-62.5-25 MCG/ACTUATION
     Route: 050
  9. MELATONIN [Concomitant]
     Active Substance: MELATONIN
     Indication: Product used for unknown indication
     Route: 050
  10. NAPROXEN [Concomitant]
     Active Substance: NAPROXEN
     Indication: Headache
     Route: 050
  11. SIMETHICONE (DIMETHICONE) [Concomitant]
     Active Substance: DIMETHICONE
     Indication: Abdominal distension
     Route: 050
  12. VILAZODONE [Concomitant]
     Active Substance: VILAZODONE
     Indication: Depression
     Route: 050

REACTIONS (4)
  - Musculoskeletal pain [Recovered/Resolved]
  - Micturition urgency [Unknown]
  - Pain in extremity [Recovered/Resolved]
  - Radiculopathy [Unknown]

NARRATIVE: CASE EVENT DATE: 20240101
